FAERS Safety Report 16379038 (Version 1)
Quarter: 2019Q2

REPORT INFORMATION
  Report Type: Spontaneous
  Country: US (occurrence: US)
  Receive Date: 20190531
  Receipt Date: 20190531
  Transmission Date: 20190711
  Serious: No
  Sender: FDA-Public Use
  Company Number: US-GLAXOSMITHKLINE-US2019097005

PATIENT
  Age: 82 Year
  Sex: Female

DRUGS (1)
  1. VOLTAREN [Suspect]
     Active Substance: DICLOFENAC SODIUM
     Indication: ARTHRITIS
     Dosage: 4 G, QID
     Route: 061
     Dates: end: 20190527

REACTIONS (6)
  - Condition aggravated [Unknown]
  - Product administered at inappropriate site [Unknown]
  - Product use issue [Unknown]
  - Drug ineffective [Unknown]
  - Pain [Unknown]
  - Hypoaesthesia [Unknown]
